FAERS Safety Report 10518661 (Version 2)
Quarter: 2014Q4

REPORT INFORMATION
  Report Type: Spontaneous
  Country: DE (occurrence: DE)
  Receive Date: 20141015
  Receipt Date: 20141015
  Transmission Date: 20150528
  Serious: Yes (Other)
  Sender: FDA-Public Use
  Company Number: DE-LEO PHARMA-227839

PATIENT
  Age: 70 Year
  Sex: Female

DRUGS (3)
  1. DICLOPHENAC-NATRIUM [Concomitant]
     Indication: ACTINIC KERATOSIS
  2. NITROGEN. [Concomitant]
     Active Substance: NITROGEN
     Indication: ACTINIC KERATOSIS
  3. PICATO [Suspect]
     Active Substance: INGENOL MEBUTATE
     Indication: ACTINIC KERATOSIS
     Dates: start: 20140512

REACTIONS (10)
  - Application site haemorrhage [Recovering/Resolving]
  - Application site pain [Recovering/Resolving]
  - Application site vesicles [Recovering/Resolving]
  - Drug administration error [Unknown]
  - Application site erythema [Recovering/Resolving]
  - Incorrect drug administration duration [Unknown]
  - Pyrexia [Recovering/Resolving]
  - Application site swelling [Recovering/Resolving]
  - Toxic skin eruption [Recovering/Resolving]
  - Application site fissure [Recovering/Resolving]

NARRATIVE: CASE EVENT DATE: 20140513
